FAERS Safety Report 10791449 (Version 2)
Quarter: 2016Q1

REPORT INFORMATION
  Report Type: Report from Study
  Country: US (occurrence: US)
  Receive Date: 20150213
  Receipt Date: 20160117
  Transmission Date: 20160525
  Serious: Yes (Hospitalization, Other)
  Sender: FDA-Public Use
  Company Number: US-AMGEN-USASP2015012698

PATIENT
  Age: 69 Year
  Sex: Female

DRUGS (3)
  1. ENBREL [Suspect]
     Active Substance: ETANERCEPT
     Dosage: UNK UNK, UNK
     Route: 065
  2. ENBREL [Suspect]
     Active Substance: ETANERCEPT
     Indication: RHEUMATOID ARTHRITIS
     Dosage: 50 MG, QWK
     Route: 065
     Dates: start: 20020101
  3. PREDNISONE. [Concomitant]
     Active Substance: PREDNISONE
     Dosage: 20 MG, QD

REACTIONS (13)
  - Deafness unilateral [Not Recovered/Not Resolved]
  - Pulmonary oedema [Unknown]
  - Malaise [Not Recovered/Not Resolved]
  - Spinal operation [Recovered/Resolved]
  - Pneumonia [Unknown]
  - Musculoskeletal pain [Not Recovered/Not Resolved]
  - Pain in extremity [Not Recovered/Not Resolved]
  - Chronic obstructive pulmonary disease [Not Recovered/Not Resolved]
  - Arthralgia [Not Recovered/Not Resolved]
  - Sinusitis [Unknown]
  - Drug effect decreased [Not Recovered/Not Resolved]
  - Mobility decreased [Not Recovered/Not Resolved]
  - Pain [Not Recovered/Not Resolved]

NARRATIVE: CASE EVENT DATE: 201601
